FAERS Safety Report 17295849 (Version 3)
Quarter: 2020Q3

REPORT INFORMATION
  Report Type: Report from Study
  Country: None (occurrence: US)
  Receive Date: 20200121
  Receipt Date: 20200916
  Transmission Date: 20201102
  Serious: Yes (Other)
  Sender: FDA-Public Use
  Company Number: US-ABBVIE-19K-163-3012492-00

PATIENT
  Sex: Male
  Weight: 69.46 kg

DRUGS (5)
  1. HUMIRA [Suspect]
     Active Substance: ADALIMUMAB
     Indication: CROHN^S DISEASE
     Route: 058
     Dates: start: 2015
  2. METHOTREXATE. [Concomitant]
     Active Substance: METHOTREXATE
     Indication: ARTHRITIS
  3. HUMIRA [Suspect]
     Active Substance: ADALIMUMAB
     Indication: CROHN^S DISEASE
     Route: 058
  4. HUMIRA [Suspect]
     Active Substance: ADALIMUMAB
     Route: 058
  5. HUMIRA [Suspect]
     Active Substance: ADALIMUMAB
     Route: 058
     Dates: start: 2015

REACTIONS (19)
  - Irritable bowel syndrome [Not Recovered/Not Resolved]
  - Vitamin D decreased [Recovering/Resolving]
  - Post-traumatic pain [Unknown]
  - Dysstasia [Unknown]
  - Muscle tightness [Recovering/Resolving]
  - Neuropathy peripheral [Recovering/Resolving]
  - Spinal column injury [Unknown]
  - Hypophagia [Not Recovered/Not Resolved]
  - Bone density abnormal [Unknown]
  - Arthritis [Recovering/Resolving]
  - Back pain [Recovering/Resolving]
  - Spinal cord injury thoracic [Recovered/Resolved]
  - Gait inability [Recovered/Resolved]
  - Injection site pain [Recovered/Resolved]
  - Hypoaesthesia [Recovering/Resolving]
  - Arthropathy [Recovering/Resolving]
  - Weight decreased [Not Recovered/Not Resolved]
  - Fall [Recovering/Resolving]
  - Peripheral swelling [Recovering/Resolving]

NARRATIVE: CASE EVENT DATE: 2018
